FAERS Safety Report 6566127-3 (Version None)
Quarter: 2010Q1

REPORT INFORMATION
  Report Type: 
  Country: None (occurrence: None)
  Receive Date: 20100202
  Receipt Date: 20100125
  Transmission Date: 20100710
  Serious: Yes (Other)
  Sender: FDA-Public Use
  Company Number: GB-JNJFOC-20090904856

PATIENT
  Age: 30 Year
  Sex: Male
  Weight: 114 kg

DRUGS (8)
  1. RISPERDAL CONSTA [Suspect]
     Indication: SCHIZOPHRENIA
     Route: 030
  2. RISPERDAL CONSTA [Suspect]
     Route: 030
  3. RISPERDAL CONSTA [Suspect]
     Route: 030
  4. RISPERDAL CONSTA [Suspect]
     Route: 030
  5. RISPERDAL CONSTA [Suspect]
     Route: 030
  6. RISPERDAL [Suspect]
     Indication: SCHIZOPHRENIA
     Dosage: 1 MG + 4 MG
     Route: 048
  7. CLOZAPINE [Concomitant]
     Route: 065
  8. SULPIRIDE [Concomitant]
     Route: 048

REACTIONS (2)
  - HEPATIC STEATOSIS [None]
  - LIVER FUNCTION TEST ABNORMAL [None]
